FAERS Safety Report 5082859-0 (Version None)
Quarter: 2006Q3

REPORT INFORMATION
  Report Type: 
  Country: None (occurrence: None)
  Receive Date: 20060817
  Receipt Date: 20060809
  Transmission Date: 20061208
  Serious: Yes (Hospitalization, Other)
  Sender: FDA-Public Use
  Company Number: US-ABBOTT-06P-163-0339887-00

PATIENT
  Sex: Female
  Weight: 72.64 kg

DRUGS (3)
  1. DEPAKOTE [Suspect]
     Indication: AFFECTIVE DISORDER
     Dosage: 500MG 3 IN 1 DAY; 250MG 1 IN 1 DAY
     Route: 048
     Dates: start: 20020101
  2. RISPERIDONE [Concomitant]
     Indication: DRUG USE FOR UNKNOWN INDICATION
     Route: 050
     Dates: start: 20020101
  3. ZIPRASIDONE HCL [Concomitant]
     Indication: DRUG USE FOR UNKNOWN INDICATION
     Route: 048

REACTIONS (7)
  - GALLBLADDER DISORDER [None]
  - HEART RATE IRREGULAR [None]
  - LIVER DISORDER [None]
  - NAIL DISCOLOURATION [None]
  - OCULAR ICTERUS [None]
  - SKIN DISCOLOURATION [None]
  - YELLOW SKIN [None]
